FAERS Safety Report 25639896 (Version 1)
Quarter: 2025Q3

REPORT INFORMATION
  Report Type: Spontaneous
  Country: US (occurrence: US)
  Receive Date: 20250804
  Receipt Date: 20250804
  Transmission Date: 20251021
  Serious: No
  Sender: ROCHE
  Company Number: US-ROCHE-10000349676

PATIENT
  Age: 34 Year
  Sex: Female
  Weight: 99.79 kg

DRUGS (2)
  1. XOLAIR [Suspect]
     Active Substance: OMALIZUMAB
     Indication: Idiopathic urticaria
     Dosage: STRENGTH:300MG/2ML
     Route: 058
     Dates: start: 202504
  2. XOLAIR [Suspect]
     Active Substance: OMALIZUMAB
     Indication: Urticaria chronic

REACTIONS (5)
  - Device breakage [Unknown]
  - Device malfunction [Unknown]
  - No adverse event [Unknown]
  - Accidental exposure to product [Unknown]
  - Product dose omission issue [Unknown]

NARRATIVE: CASE EVENT DATE: 20250725
